FAERS Safety Report 4983345-6 (Version None)
Quarter: 2006Q2

REPORT INFORMATION
  Report Type: 
  Country: None (occurrence: None)
  Receive Date: 20060426
  Receipt Date: 20050602
  Transmission Date: 20061013
  Serious: Yes (Hospitalization)
  Sender: FDA-Public Use
  Company Number: US-MERCK-0506USA00593

PATIENT
  Age: 49 Year
  Sex: Male
  Weight: 84 kg

DRUGS (6)
  1. VIOXX [Suspect]
     Indication: ARTHRITIS
     Route: 048
     Dates: start: 20011204, end: 20020101
  2. NEURONTIN [Concomitant]
     Route: 048
  3. QUININE [Concomitant]
     Route: 048
  4. BENADRYL [Concomitant]
     Route: 048
  5. TRILISATE TABLETS/LIQUID [Concomitant]
     Route: 048
  6. LORTAB [Concomitant]
     Route: 048

REACTIONS (7)
  - ARTERIAL OCCLUSIVE DISEASE [None]
  - ARTERIOSCLEROSIS [None]
  - CHEST PAIN [None]
  - EMBOLISM [None]
  - HEPATOCELLULAR DAMAGE [None]
  - PERIPHERAL ISCHAEMIA [None]
  - THROMBOSIS [None]
